FAERS Safety Report 9355066 (Version 2)
Quarter: 2013Q3

REPORT INFORMATION
  Report Type: Report from Study
  Country: FR (occurrence: FR)
  Receive Date: 20130619
  Receipt Date: 20130709
  Transmission Date: 20140515
  Serious: Yes (Death, Hospitalization)
  Sender: FDA-Public Use
  Company Number: FR-ROCHE-1235523

PATIENT
  Age: 93 Year
  Sex: Female
  Weight: 46 kg

DRUGS (7)
  1. VISMODEGIB [Suspect]
     Indication: BASAL CELL CARCINOMA
     Dosage: THE LAST DOSE PRIOR TO THE EVENT WAS ON 06/JUN/2013. TEMPORARILY INTERRUPTED.
     Route: 048
     Dates: start: 20130119
  2. KARDEGIC [Concomitant]
     Indication: ARRHYTHMIA
     Route: 065
     Dates: start: 200006
  3. HEMIGOXINE NATIVELLE [Concomitant]
     Indication: ARRHYTHMIA
     Route: 065
     Dates: start: 200006
  4. ENALAPRIL [Concomitant]
     Indication: HYPERTENSION
     Route: 065
     Dates: start: 200006
  5. SMECTA (FRANCE) [Concomitant]
     Indication: DIARRHOEA
     Route: 065
  6. LOPERAMIDE [Concomitant]
     Indication: DIARRHOEA
     Route: 065
  7. DEXERYL (FRANCE) [Concomitant]
     Route: 065

REACTIONS (2)
  - Pyrexia [Not Recovered/Not Resolved]
  - Death [Fatal]
